FAERS Safety Report 6900658 (Version 2)
Quarter: 2020Q3

REPORT INFORMATION
  Report Type: Report from Study
  Country: US (occurrence: US)
  Receive Date: 20090204
  Receipt Date: 20090213
  Transmission Date: 20201104
  Serious: Yes (Other)
  Sender: FDA-Public Use
  Company Number: US-ROCHE-610213

PATIENT
  Age: 84 Year
  Sex: Female

DRUGS (18)
  1. GINKGO BILOBA [Concomitant]
     Active Substance: GINKGO
  2. VITAMIN B COMPLEX [Concomitant]
     Active Substance: CYANOCOBALAMIN\DEXPANTHENOL\NIACINAMIDE\PYRIDOXINE HYDROCHLORIDE\RIBOFLAVIN 5^-PHOSPHATE SODIUM\THIAMINE HYDROCHLORIDE\VITAMIN B COMPLEX
  3. ACTONEL [Suspect]
     Active Substance: RISEDRONATE SODIUM
     Indication: OSTEOPOROSIS
     Route: 065
  4. UBIDECARENONE. [Concomitant]
     Active Substance: UBIDECARENONE
  5. ASPIRIN. [Concomitant]
     Active Substance: ASPIRIN
     Dosage: DRUG: BABY ASPIRIN.
  6. MELOXICAM. [Concomitant]
     Active Substance: MELOXICAM
  7. FOLIC ACID. [Concomitant]
     Active Substance: FOLIC ACID
  8. TRAMADOL. [Concomitant]
     Active Substance: TRAMADOL
     Dosage: AS NEEDED
  9. CHONDROITIN SULFATE (BOVINE)\GLUCOSAMINE SULFATE [Concomitant]
     Active Substance: CHONDROITIN SULFATE (BOVINE)\GLUCOSAMINE SULFATE
     Dosage: DRUG REPORETD: GLUCOSAMINE/CHONDROITIN PLUS MSM
  10. CALCIUM [Concomitant]
     Active Substance: CALCIUM
  11. MAGNESIUM\ZINC [Concomitant]
     Active Substance: MAGNESIUM\ZINC
     Dosage: DRUG REPORTED: MAGNESIUM AND ZINC PLUS VITAMIN D
  12. STOOL SOFTENER [Concomitant]
  13. METHOTREXATE. [Concomitant]
     Active Substance: METHOTREXATE
  14. VITAMINS NOS [Concomitant]
     Active Substance: VITAMINS
  15. MINERALS [Concomitant]
     Active Substance: MINERALS
  16. IBANDRONIC ACID. [Suspect]
     Active Substance: IBANDRONIC ACID
     Indication: OSTEOPOROSIS
     Route: 048
     Dates: start: 20080206, end: 20081015
  17. VESICARE [Concomitant]
     Active Substance: SOLIFENACIN SUCCINATE
  18. RHINOCORT [Concomitant]
     Active Substance: BUDESONIDE

REACTIONS (3)
  - Dyspepsia [Not Recovered/Not Resolved]
  - Knee operation [Unknown]
  - Peripheral sensory neuropathy [Unknown]
